FAERS Safety Report 20617114 (Version 3)
Quarter: 2022Q2

REPORT INFORMATION
  Report Type: Report from Study
  Country: US (occurrence: US)
  Receive Date: 20220321
  Receipt Date: 20220519
  Transmission Date: 20220721
  Serious: Yes (Hospitalization, Other)
  Sender: FDA-Public Use
  Company Number: US-ABBVIE-22K-163-4322045-00

PATIENT
  Sex: Male

DRUGS (2)
  1. IMBRUVICA [Suspect]
     Active Substance: IBRUTINIB
     Indication: Product used for unknown indication
     Route: 048
  2. IMBRUVICA [Suspect]
     Active Substance: IBRUTINIB
     Dosage: DOSE INCREASED
     Route: 048
     Dates: end: 202203

REACTIONS (4)
  - Cerebral haemorrhage [Unknown]
  - Hospitalisation [Unknown]
  - Traumatic haematoma [Recovering/Resolving]
  - Head injury [Recovering/Resolving]

NARRATIVE: CASE EVENT DATE: 20220101
